FAERS Safety Report 11151904 (Version 2)
Quarter: 2015Q2

REPORT INFORMATION
  Report Type: Spontaneous
  Country: US (occurrence: US)
  Receive Date: 20150601
  Receipt Date: 20150626
  Transmission Date: 20150821
  Serious: Yes (Other)
  Sender: FDA-Public Use
  Company Number: US-PFIZER INC-2015184887

PATIENT
  Age: 58 Year
  Sex: Male
  Weight: 86.62 kg

DRUGS (8)
  1. VALPROIC ACID. [Concomitant]
     Active Substance: VALPROIC ACID
     Dosage: 250MG CAPSULE 6 ORAL DAILY
     Route: 048
  2. LISINOPRIL-HYDROCHLOROTHIAZIDE [Concomitant]
     Active Substance: HYDROCHLOROTHIAZIDE\LISINOPRIL
     Dosage: 20-25MG TABLET, DAILY
     Route: 048
  3. TRAZODONE HYDROCHLORIDE. [Concomitant]
     Active Substance: TRAZODONE HYDROCHLORIDE
     Dosage: 100 MG, DAILY
     Route: 048
  4. LYRICA [Suspect]
     Active Substance: PREGABALIN
     Indication: NEUROPATHY PERIPHERAL
     Dosage: 50 MG, DAILY (IN THE MORNING)
     Route: 048
     Dates: start: 20150526
  5. AMLODIPINE BESYLATE. [Concomitant]
     Active Substance: AMLODIPINE BESYLATE
     Dosage: 10 MG, DAILY
     Route: 048
  6. ATENOLOL. [Concomitant]
     Active Substance: ATENOLOL
     Dosage: 25 MG, DAILY
     Route: 048
  7. CLONAZEPAM. [Concomitant]
     Active Substance: CLONAZEPAM
     Dosage: 0.5MG TABLET 3 DAILY AS NEEDED
     Route: 048
  8. PAROXETINE HCL [Concomitant]
     Active Substance: PAROXETINE HYDROCHLORIDE
     Dosage: 40 MG, DAILY
     Route: 048

REACTIONS (12)
  - Anxiety [Unknown]
  - Phobia [Unknown]
  - Bipolar disorder [Unknown]
  - Decreased appetite [Not Recovered/Not Resolved]
  - Myalgia [Unknown]
  - Depression [Unknown]
  - Agitation [Not Recovered/Not Resolved]
  - Neck pain [Unknown]
  - Joint stiffness [Unknown]
  - Back pain [Unknown]
  - Fatigue [Unknown]
  - Concussion [Unknown]

NARRATIVE: CASE EVENT DATE: 20150526
